FAERS Safety Report 16640473 (Version 1)
Quarter: 2019Q3

REPORT INFORMATION
  Report Type: Spontaneous
  Country: US (occurrence: US)
  Receive Date: 20190729
  Receipt Date: 20190729
  Transmission Date: 20191004
  Serious: Yes (Hospitalization)
  Sender: FDA-Public Use
  Company Number: US-ROCHE-2360426

PATIENT
  Age: 47 Year
  Sex: Male

DRUGS (1)
  1. COTELLIC [Suspect]
     Active Substance: COBIMETINIB
     Indication: CARCINOID TUMOUR
     Route: 048
     Dates: start: 20190607

REACTIONS (4)
  - Vomiting [Unknown]
  - Mastication disorder [Unknown]
  - Abdominal distension [Unknown]
  - Hypoaesthesia [Unknown]

NARRATIVE: CASE EVENT DATE: 20190714
